FAERS Safety Report 8272718-4 (Version None)
Quarter: 2012Q2

REPORT INFORMATION
  Report Type: 
  Country: None (occurrence: None)
  Receive Date: 20120411
  Receipt Date: 20120328
  Transmission Date: 20120825
  Serious: Yes (Life-Threatening)
  Sender: FDA-Public Use
  Company Number: JP-BAXTER-2012BH007218

PATIENT
  Sex: Male

DRUGS (6)
  1. FILGRASTIM [Suspect]
     Indication: TESTIS CANCER
     Route: 058
     Dates: start: 20120224, end: 20120227
  2. BLEOMYCIN SULFATE [Suspect]
     Indication: TESTIS CANCER
     Route: 042
     Dates: start: 20111109, end: 20120201
  3. DECADRON [Concomitant]
     Route: 042
     Dates: start: 20111111, end: 20120201
  4. ALOXI [Concomitant]
     Route: 042
     Dates: start: 20111111, end: 20120201
  5. ETOPOSIDE [Suspect]
     Indication: TESTIS CANCER
     Route: 042
     Dates: start: 20111111, end: 20120201
  6. CISPLATIN [Suspect]
     Indication: TESTIS CANCER
     Route: 042
     Dates: start: 20111111, end: 20120201

REACTIONS (1)
  - INTERSTITIAL LUNG DISEASE [None]
